FAERS Safety Report 19613069 (Version 1)
Quarter: 2021Q3

REPORT INFORMATION
  Report Type: Report from Study
  Country: US (occurrence: US)
  Receive Date: 20210727
  Receipt Date: 20210727
  Transmission Date: 20211014
  Serious: Yes (Other)
  Sender: FDA-Public Use
  Company Number: US-ASTELLAS-2018US046134

PATIENT
  Age: 78 Year
  Sex: Male

DRUGS (1)
  1. ENZALUTAMIDE [Suspect]
     Active Substance: ENZALUTAMIDE
     Indication: PROSTATE CANCER
     Route: 048
     Dates: start: 201809, end: 20191222

REACTIONS (7)
  - Diabetes mellitus [Unknown]
  - Blood glucose fluctuation [Unknown]
  - Blood glucose increased [Unknown]
  - Epistaxis [Recovered/Resolved]
  - Rash [Recovered/Resolved]
  - Dizziness [Unknown]
  - Product distribution issue [Unknown]

NARRATIVE: CASE EVENT DATE: 20181009
